FAERS Safety Report 10230566 (Version 1)
Quarter: 2014Q2

REPORT INFORMATION
  Report Type: Spontaneous
  Country: US (occurrence: US)
  Receive Date: 20140611
  Receipt Date: 20140611
  Transmission Date: 20141212
  Serious: No
  Sender: FDA-Public Use
  Company Number: US-INCYTE CORPORATION-2014IN001199

PATIENT
  Sex: 0

DRUGS (3)
  1. JAKAFI [Suspect]
     Indication: MYELOFIBROSIS
     Dosage: 5 MG, QD (ONCE DAILY)
     Route: 048
     Dates: end: 201404
  2. JAKAFI [Suspect]
     Dosage: NOT SPECIFIED
     Route: 048
     Dates: start: 2014
  3. ADVIL                              /00109201/ [Concomitant]

REACTIONS (1)
  - Biopsy [Unknown]
